FAERS Safety Report 17720817 (Version 1)
Quarter: 2020Q2

REPORT INFORMATION
  Report Type: Spontaneous
  Country: US (occurrence: US)
  Receive Date: 20200428
  Receipt Date: 20200428
  Transmission Date: 20200714
  Serious: No
  Sender: FDA-Public Use
  Company Number: US-ROCHE-2502711

PATIENT
  Sex: Female

DRUGS (2)
  1. LUCENTIS [Suspect]
     Active Substance: RANIBIZUMAB
     Indication: PRODUCT USED FOR UNKNOWN INDICATION
     Dosage: RECEIVED 1 DOSE ;ONGOING: UNKNOWN
     Route: 065
     Dates: start: 2019
  2. AVASTIN [Suspect]
     Active Substance: BEVACIZUMAB
     Indication: PRODUCT USED FOR UNKNOWN INDICATION
     Dosage: RECEIVED 4-6 DOSES ;ONGOING: NO
     Route: 065
     Dates: start: 2018

REACTIONS (1)
  - Diarrhoea [Unknown]
